FAERS Safety Report 9849376 (Version 1)
Quarter: 2014Q1

REPORT INFORMATION
  Report Type: Spontaneous
  Country: JP (occurrence: JP)
  Receive Date: 20140128
  Receipt Date: 20140128
  Transmission Date: 20141002
  Serious: Yes (Hospitalization)
  Sender: FDA-Public Use
  Company Number: JP-MYLANLABS-2014S1001291

PATIENT
  Age: 86 Year
  Sex: Male

DRUGS (2)
  1. CARBOPLATIN [Suspect]
     Indication: PROSTATE CANCER
     Route: 041
  2. DOCETAXEL [Concomitant]
     Indication: PROSTATE CANCER
     Route: 041

REACTIONS (1)
  - Pneumocystis jirovecii pneumonia [Unknown]
